FAERS Safety Report 8374962-4 (Version None)
Quarter: 2012Q2

REPORT INFORMATION
  Report Type: 
  Country: None (occurrence: None)
  Receive Date: 20120521
  Receipt Date: 20120510
  Transmission Date: 20120825
  Serious: Yes (Hospitalization)
  Sender: FDA-Public Use
  Company Number: US-ROCHE-1039647

PATIENT
  Sex: Female

DRUGS (4)
  1. OMALIZUMAB [Suspect]
     Indication: PRODUCT USED FOR UNKNOWN INDICATION
     Route: 064
  2. ALBUTEROL [Concomitant]
     Indication: WHEEZING
     Dosage: AS PER NEEDED.
     Dates: start: 20111031
  3. ALBUTEROL [Concomitant]
     Indication: PNEUMONIA
     Dosage: MOST RECENT DOSE  31/OCT/2011
     Dates: start: 20111028
  4. ROCEPHIN [Concomitant]
     Indication: PNEUMONIA
     Route: 042
     Dates: start: 20111028, end: 20111031

REACTIONS (1)
  - PNEUMONIA [None]
